FAERS Safety Report 16154597 (Version 3)
Quarter: 2019Q2

REPORT INFORMATION
  Report Type: Spontaneous
  Country: BR (occurrence: BR)
  Receive Date: 20190403
  Receipt Date: 20190419
  Transmission Date: 20190711
  Serious: Yes (Other)
  Sender: FDA-Public Use
  Company Number: BR-PFIZER INC-2019140181

PATIENT
  Age: 22 Year
  Sex: Male

DRUGS (1)
  1. ADVIL [Suspect]
     Active Substance: IBUPROFEN
     Indication: MIGRAINE
     Dosage: 1 CAPSULE OF 400 MG, SINGLE
     Dates: start: 20190320, end: 20190320

REACTIONS (14)
  - Nasal congestion [Recovered/Resolved]
  - Dry throat [Unknown]
  - Oropharyngeal discomfort [Unknown]
  - Eye irritation [Unknown]
  - Dyspnoea [Recovered/Resolved]
  - Sedation [Unknown]
  - Dysphagia [Unknown]
  - Blindness transient [Recovered/Resolved]
  - Eye swelling [Recovered/Resolved]
  - Hypersensitivity [Recovered/Resolved]
  - Lip swelling [Recovered/Resolved]
  - Swelling face [Recovered/Resolved]
  - Product label issue [Recovered/Resolved]
  - Paraesthesia [Recovered/Resolved]

NARRATIVE: CASE EVENT DATE: 201903
